FAERS Safety Report 14340917 (Version 2)
Quarter: 2018Q1

REPORT INFORMATION
  Report Type: Report from Study
  Country: None (occurrence: DE)
  Receive Date: 20180102
  Receipt Date: 20180109
  Transmission Date: 20180509
  Serious: Yes (Hospitalization, Other)
  Sender: FDA-Public Use
  Company Number: DE-ABBVIE-17K-062-2198442-00

PATIENT
  Age: 76 Year
  Sex: Female

DRUGS (2)
  1. MADOPAR DEPOT [Concomitant]
     Active Substance: BENSERAZIDE HYDROCHLORIDE\LEVODOPA
     Indication: PRODUCT USED FOR UNKNOWN INDICATION
     Dosage: BY NIGHT
  2. DUODOPA [Suspect]
     Active Substance: CARBIDOPA\LEVODOPA
     Indication: PARKINSON^S DISEASE
     Dosage: MD 11.0 ML; CRD 4.1 ML/HR; ED 3.0 ML
     Route: 050
     Dates: start: 20170712

REACTIONS (6)
  - Gait disturbance [Not Recovered/Not Resolved]
  - Femur fracture [Not Recovered/Not Resolved]
  - Fall [Not Recovered/Not Resolved]
  - Listless [Not Recovered/Not Resolved]
  - Cough [Not Recovered/Not Resolved]
  - Dyskinesia [Not Recovered/Not Resolved]

NARRATIVE: CASE EVENT DATE: 201712
